FAERS Safety Report 9482152 (Version 1)
Quarter: 2013Q3

REPORT INFORMATION
  Report Type: Spontaneous
  Country: CZ (occurrence: CZ)
  Receive Date: 20130828
  Receipt Date: 20130828
  Transmission Date: 20140515
  Serious: Yes (Other)
  Sender: FDA-Public Use
  Company Number: CZ-JNJFOC-20130810635

PATIENT
  Sex: 0

DRUGS (5)
  1. INFLIXIMAB, RECOMBINANT [Suspect]
     Indication: CROHN^S DISEASE
     Dosage: INDUCTION DOSES AT 0, 2ND AND 6TH WEEK
     Route: 042
  2. CORTICOSTEROIDS [Suspect]
     Indication: CROHN^S DISEASE
     Route: 065
  3. THIOPURINE [Concomitant]
     Route: 065
  4. BUDESONIDE [Concomitant]
     Route: 061
  5. MESALAZINE [Concomitant]
     Route: 065

REACTIONS (4)
  - Therapeutic response decreased [Unknown]
  - Infusion related reaction [Unknown]
  - Skin disorder [Unknown]
  - Intestinal resection [Unknown]
